FAERS Safety Report 23240821 (Version 2)
Quarter: 2024Q4

REPORT INFORMATION
  Report Type: Spontaneous
  Country: US (occurrence: US)
  Receive Date: 20231129
  Receipt Date: 20241203
  Transmission Date: 20250114
  Serious: No
  Sender: SEPTODONT
  Company Number: US-SEPTODONT-2023018012

PATIENT

DRUGS (1)
  1. LIDOCAINE HYDROCHLORIDE [Suspect]
     Active Substance: LIDOCAINE HYDROCHLORIDE
     Indication: Dental local anaesthesia
     Route: 004

REACTIONS (1)
  - Drug ineffective [Unknown]
